FAERS Safety Report 16873209 (Version 2)
Quarter: 2019Q4

REPORT INFORMATION
  Report Type: Spontaneous
  Country: JP (occurrence: JP)
  Receive Date: 20191001
  Receipt Date: 20191002
  Transmission Date: 20200122
  Serious: No
  Sender: FDA-Public Use
  Company Number: JP-ASTELLAS-2019JP021313

PATIENT
  Age: 28 Year
  Sex: Female
  Weight: 46 kg

DRUGS (12)
  1. PLAQUENIL [Concomitant]
     Active Substance: HYDROXYCHLOROQUINE SULFATE
     Indication: LUPUS NEPHRITIS
     Route: 048
     Dates: start: 20171206
  2. ALFACALCIDOL [Concomitant]
     Active Substance: ALFACALCIDOL
     Indication: BONE DENSITY DECREASED
     Route: 048
  3. PREDONINE [Concomitant]
     Active Substance: PREDNISOLONE
     Indication: LUPUS NEPHRITIS
     Route: 048
     Dates: start: 20111225
  4. PROGRAF [Suspect]
     Active Substance: TACROLIMUS
     Indication: LUPUS NEPHRITIS
     Route: 048
     Dates: start: 20111222
  5. FAMOTIDINE. [Concomitant]
     Active Substance: FAMOTIDINE
     Indication: PRODUCT USED FOR UNKNOWN INDICATION
     Route: 048
  6. CERCINE [Concomitant]
     Active Substance: DIAZEPAM
     Indication: ABORTION INDUCED
     Route: 042
     Dates: start: 20190221, end: 20190221
  7. CINAL [Concomitant]
     Active Substance: ASCORBIC ACID\CALCIUM PANTOTHENATE
     Indication: PRODUCT USED FOR UNKNOWN INDICATION
     Route: 048
  8. PRALIA [Concomitant]
     Active Substance: DENOSUMAB
     Indication: BONE DENSITY DECREASED
     Dosage: 60 MG, ONCE A HALF YEAR
     Route: 058
     Dates: start: 20170621, end: 20170621
  9. MEPIVACAINE HYDROCHLORIDE. [Concomitant]
     Active Substance: MEPIVACAINE HYDROCHLORIDE
     Indication: ABORTION INDUCED
     Route: 058
     Dates: start: 20190221, end: 20190221
  10. SOSEGON                            /00052101/ [Concomitant]
     Active Substance: PENTAZOCINE
     Indication: ABORTION INDUCED
     Route: 041
     Dates: start: 20190221, end: 20190221
  11. METHYLERGOMETRINE                  /00089502/ [Concomitant]
     Indication: ABORTION INDUCED
     Dosage: 0.2 MG, ONCE DAILY
     Route: 042
     Dates: start: 20190221, end: 20190221
  12. CEFMETAZOLE NA [Concomitant]
     Active Substance: CEFMETAZOLE
     Indication: ABORTION INDUCED
     Route: 041
     Dates: start: 20190221, end: 20190221

REACTIONS (2)
  - Maternal exposure during pregnancy [Unknown]
  - Prescribed underdose [Unknown]

NARRATIVE: CASE EVENT DATE: 20111222
